FAERS Safety Report 6177003-2 (Version None)
Quarter: 2009Q2

REPORT INFORMATION
  Report Type: 
  Country: None (occurrence: None)
  Receive Date: 20090501
  Receipt Date: 20090227
  Transmission Date: 20091009
  Serious: Yes (Other)
  Sender: FDA-Public Use
  Company Number: US-ALEXION-A200900140

PATIENT
  Sex: Female

DRUGS (5)
  1. SOLIRIS [Suspect]
     Indication: PAROXYSMAL NOCTURNAL HAEMOGLOBINURIA
     Dosage: 600 MG, QW
     Route: 042
     Dates: start: 20071001, end: 20071029
  2. SOLIRIS [Suspect]
     Dosage: 900 MG, Q2W
     Route: 042
     Dates: start: 20071105
  3. PROCRIT                            /00909301/ [Concomitant]
     Dosage: 60000
  4. PROCRIT                            /00909301/ [Concomitant]
     Dosage: 40000
  5. PROCRIT                            /00909301/ [Concomitant]
     Dosage: 60000
     Route: 048

REACTIONS (3)
  - FEELING ABNORMAL [None]
  - LOCALISED INFECTION [None]
  - RASH [None]
